FAERS Safety Report 6271865-6 (Version None)
Quarter: 2009Q3

REPORT INFORMATION
  Report Type: 
  Country: None (occurrence: None)
  Receive Date: 20090717
  Receipt Date: 20090617
  Transmission Date: 20100115
  Serious: Yes (Death, Other)
  Sender: FDA-Public Use
  Company Number: PHHY2009JP24846

PATIENT
  Age: 38 Year
  Sex: Female

DRUGS (2)
  1. IMATINIB MESYLATE [Suspect]
     Dosage: 200 MG/DAY
  2. IMATINIB MESYLATE [Suspect]
     Dosage: 100-150 MG/DAY

REACTIONS (7)
  - ASCITES [None]
  - DEATH [None]
  - GENERAL PHYSICAL HEALTH DETERIORATION [None]
  - METASTASES TO LUNG [None]
  - PLEURAL EFFUSION [None]
  - SURGERY [None]
  - THROMBOCYTOPENIA [None]
